FAERS Safety Report 24447783 (Version 1)
Quarter: 2024Q4

REPORT INFORMATION
  Report Type: Spontaneous
  Country: US (occurrence: US)
  Receive Date: 20241016
  Receipt Date: 20241016
  Transmission Date: 20250115
  Serious: No
  Sender: SANOFI AVENTIS
  Company Number: US-SA-2024SA295377

PATIENT
  Age: 68 Year
  Sex: Female

DRUGS (4)
  1. DUPIXENT [Suspect]
     Active Substance: DUPILUMAB
     Indication: Bronchiectasis
     Dosage: 300 MG, QOW
     Route: 058
     Dates: start: 202409
  2. TOBRAMYCIN [Concomitant]
     Active Substance: TOBRAMYCIN\TOBRAMYCIN SULFATE
  3. PULMOZYME [Concomitant]
     Active Substance: DORNASE ALFA
  4. XOLAIR [Concomitant]
     Active Substance: OMALIZUMAB

REACTIONS (1)
  - Product use in unapproved indication [Unknown]

NARRATIVE: CASE EVENT DATE: 20240901
